FAERS Safety Report 9025139 (Version 1)
Quarter: 2013Q1

REPORT INFORMATION
  Report Type: Other
  Country: GB (occurrence: GB)
  Receive Date: 20130122
  Receipt Date: 20130122
  Transmission Date: 20140127
  Serious: Yes (Death)
  Sender: FDA-Public Use
  Company Number: GB-WATSON-2013-00696

PATIENT
  Age: 79 Year
  Sex: Male
  Weight: 65 kg

DRUGS (3)
  1. ALLOPURINOL (UNKNOWN) [Suspect]
     Indication: PROPHYLAXIS
     Dosage: UNK
     Route: 065
     Dates: start: 20120725
  2. RITUXIMAB [Suspect]
     Indication: NON-HODGKIN^S LYMPHOMA
     Dosage: 100MG ON 25.07.12, 550MG ON 27.07.12
     Route: 042
     Dates: start: 20120725, end: 20120727
  3. ALLOPURINOL [Concomitant]
     Indication: PRODUCT USED FOR UNKNOWN INDICATION
     Dosage: UNK
     Dates: start: 20120725

REACTIONS (2)
  - Dyspnoea [Fatal]
  - Hypersensitivity [Unknown]
